FAERS Safety Report 17048018 (Version 1)
Quarter: 2019Q4

REPORT INFORMATION
  Report Type: Report from Study
  Country: IT (occurrence: IT)
  Receive Date: 20191119
  Receipt Date: 20191119
  Transmission Date: 20200122
  Serious: Yes (Other)
  Sender: FDA-Public Use
  Company Number: IT-AMGEN-ITACT2019188374

PATIENT
  Age: 18 Year
  Sex: Male

DRUGS (47)
  1. BLINATUMOMAB [Suspect]
     Active Substance: BLINATUMOMAB
     Dosage: 28 MICROGRAM, QD
     Route: 042
     Dates: start: 20191031, end: 20191107
  2. PREDNISONE. [Suspect]
     Active Substance: PREDNISONE
     Indication: ACUTE LYMPHOCYTIC LEUKAEMIA
     Dosage: 55 MILLIGRAM, QD
     Route: 065
     Dates: start: 20190612, end: 20190617
  3. VINCRISTINE [Suspect]
     Active Substance: VINCRISTINE
     Indication: ACUTE LYMPHOCYTIC LEUKAEMIA
     Dosage: 2 MILLIGRAM, QD
     Route: 065
     Dates: start: 20190626
  4. DEXAMETHASONE. [Suspect]
     Active Substance: DEXAMETHASONE
     Indication: ACUTE LYMPHOCYTIC LEUKAEMIA
     Dosage: 20 MILLIGRAM, QD
     Route: 065
     Dates: start: 20190626, end: 20190630
  5. METHOTREXATE. [Suspect]
     Active Substance: METHOTREXATE
     Dosage: 12.5 MILLIGRAM
     Route: 065
     Dates: start: 20191001
  6. CYTARABINE. [Suspect]
     Active Substance: CYTARABINE
     Dosage: 50 MILLIGRAM
     Route: 065
     Dates: start: 20190701
  7. CYTARABINE. [Suspect]
     Active Substance: CYTARABINE
     Dosage: 50 MILLIGRAM
     Route: 065
     Dates: start: 20190809
  8. PREDNISOLONE. [Suspect]
     Active Substance: PREDNISOLONE
     Dosage: 40 MILLIGRAM
     Route: 065
     Dates: start: 20190726
  9. PREDNISOLONE. [Suspect]
     Active Substance: PREDNISOLONE
     Dosage: 40 MILLIGRAM
     Route: 065
     Dates: start: 20191001
  10. G-CSF [Suspect]
     Active Substance: GRANULOCYTE COLONY-STIMULATING FACTOR NOS
     Indication: ACUTE LYMPHOCYTIC LEUKAEMIA
     Dosage: 5 MICROGRAM/KILOGRAM, QD
     Route: 065
     Dates: start: 20190630, end: 20190714
  11. BACTRIM [Concomitant]
     Active Substance: SULFAMETHOXAZOLE\TRIMETHOPRIM
     Dosage: 1 CAPSULE ON MONDAY/WEDNESDAY/FRIDAY
     Dates: start: 20191015
  12. VINCRISTINE [Suspect]
     Active Substance: VINCRISTINE
     Dosage: UNK
     Route: 065
     Dates: start: 20190710
  13. METHOTREXATE. [Suspect]
     Active Substance: METHOTREXATE
     Dosage: 12.5 MILLIGRAM
     Route: 065
     Dates: start: 20190726
  14. FOLINIC ACID [Suspect]
     Active Substance: LEUCOVORIN
     Dosage: 80 MILLIGRAM
     Route: 065
     Dates: start: 20190910
  15. IDARUBICIN [Suspect]
     Active Substance: IDARUBICIN
     Dosage: 24 MILLIGRAM, QD
     Route: 065
     Dates: start: 20190627
  16. IDARUBICIN [Suspect]
     Active Substance: IDARUBICIN
     Dosage: 24 MILLIGRAM, QD
     Route: 065
     Dates: start: 20190725
  17. DEXAMETHASONE. [Suspect]
     Active Substance: DEXAMETHASONE
     Dosage: 20 MILLIGRAM, QD
     Route: 065
     Dates: start: 20191031
  18. PEG/L-ASPARAGINASE [Suspect]
     Active Substance: PEGASPARGASE
     Indication: ACUTE LYMPHOCYTIC LEUKAEMIA
     Dosage: 2000 INTERNATIONAL UNIT
     Route: 065
     Dates: start: 20190705
  19. TACHIPIRINA [Concomitant]
     Active Substance: ACETAMINOPHEN
     Dosage: 1 DOSAGE FORM, QD
     Dates: start: 20190930
  20. CYCLOPHOSPHAMIDE. [Suspect]
     Active Substance: CYCLOPHOSPHAMIDE
     Indication: ACUTE LYMPHOCYTIC LEUKAEMIA
     Dosage: 600 MILLIGRAM, QD
     Route: 065
     Dates: start: 20190614, end: 20190616
  21. DEXAMETHASONE. [Suspect]
     Active Substance: DEXAMETHASONE
     Dosage: 20 MILLIGRAM, QD
     Route: 065
     Dates: start: 20190725, end: 20190729
  22. DEXAMETHASONE. [Suspect]
     Active Substance: DEXAMETHASONE
     Dosage: 20 MILLIGRAM, QD
     Route: 065
     Dates: start: 20191004
  23. CYTARABINE. [Suspect]
     Active Substance: CYTARABINE
     Indication: ACUTE LYMPHOCYTIC LEUKAEMIA
     Dosage: 50 MILLIGRAM
     Route: 065
     Dates: start: 20190617
  24. DEURSIL [Concomitant]
     Active Substance: URSODIOL
     Dosage: 450 MILLIGRAM, QD (1 CAPSULE)
     Dates: start: 20190930
  25. CYCLOPHOSPHAMIDE. [Suspect]
     Active Substance: CYCLOPHOSPHAMIDE
     Dosage: 2000 MILLIGRAM
     Route: 065
     Dates: start: 20190725
  26. PEG/L-ASPARAGINASE [Suspect]
     Active Substance: PEGASPARGASE
     Dosage: 2000 INTERNATIONAL UNIT
     Route: 065
     Dates: start: 20190801
  27. METHOTREXATE. [Suspect]
     Active Substance: METHOTREXATE
     Dosage: 12.5 MILLIGRAM
     Route: 065
     Dates: start: 20190701
  28. CYTARABINE. [Suspect]
     Active Substance: CYTARABINE
     Dosage: 50 MILLIGRAM
     Route: 065
     Dates: start: 20191001
  29. FOLINIC ACID [Suspect]
     Active Substance: LEUCOVORIN
     Indication: ACUTE LYMPHOCYTIC LEUKAEMIA
     Dosage: 180 MILLIGRAM
     Route: 065
     Dates: start: 20190909
  30. KEPPRA [Suspect]
     Active Substance: LEVETIRACETAM
     Indication: ACUTE LYMPHOCYTIC LEUKAEMIA
     Dosage: 500 MILLIGRAM
     Route: 065
     Dates: start: 20191003
  31. VINCRISTINE [Suspect]
     Active Substance: VINCRISTINE
     Dosage: UNK
     Route: 065
     Dates: start: 20190703
  32. METHOTREXATE. [Suspect]
     Active Substance: METHOTREXATE
     Dosage: 12.5 MILLIGRAM
     Route: 065
     Dates: start: 20190809
  33. CYTARABINE. [Suspect]
     Active Substance: CYTARABINE
     Dosage: 8000 MILLIGRAM, QD
     Route: 065
     Dates: start: 20190909
  34. PREDNISOLONE. [Suspect]
     Active Substance: PREDNISOLONE
     Dosage: 40 MILLIGRAM
     Route: 065
     Dates: start: 20190701
  35. G-CSF [Suspect]
     Active Substance: GRANULOCYTE COLONY-STIMULATING FACTOR NOS
     Dosage: 5 MICROGRAM/KILOGRAM, QD
     Route: 065
     Dates: start: 20190803
  36. 6-MP [Suspect]
     Active Substance: MERCAPTOPURINE
     Indication: ACUTE LYMPHOCYTIC LEUKAEMIA
     Dosage: 100MG OR 150MG ON ALTERNATED DAYS
     Route: 065
     Dates: start: 20190725
  37. KEPPRA [Suspect]
     Active Substance: LEVETIRACETAM
     Dosage: 1000 MILLIGRAM, QD
     Route: 065
     Dates: start: 20191004, end: 20191024
  38. ACICLOVIR [Concomitant]
     Active Substance: ACYCLOVIR
     Dosage: 400 MILLIGRAM, 1CP PER 2
     Dates: start: 20190930
  39. BLINATUMOMAB [Suspect]
     Active Substance: BLINATUMOMAB
     Indication: ACUTE LYMPHOCYTIC LEUKAEMIA
     Dosage: 28 MICROGRAM, QD
     Route: 042
     Dates: start: 20191004, end: 20191024
  40. VINCRISTINE [Suspect]
     Active Substance: VINCRISTINE
     Dosage: UNK
     Route: 065
     Dates: start: 20190717
  41. METHOTREXATE. [Suspect]
     Active Substance: METHOTREXATE
     Dosage: 500 MILLIGRAM, QD
     Route: 065
     Dates: start: 20190907
  42. CYTARABINE. [Suspect]
     Active Substance: CYTARABINE
     Dosage: 150 MILLIGRAM, QD
     Route: 065
     Dates: start: 20190726, end: 20190729
  43. PREDNISOLONE. [Suspect]
     Active Substance: PREDNISOLONE
     Indication: ACUTE LYMPHOCYTIC LEUKAEMIA
     Dosage: 40 MILLIGRAM
     Route: 065
     Dates: start: 20190617
  44. KEPPRA [Suspect]
     Active Substance: LEVETIRACETAM
     Dosage: 1000 MILLIGRAM, QD
     Route: 065
     Dates: start: 20191026, end: 20191107
  45. IDARUBICIN [Suspect]
     Active Substance: IDARUBICIN
     Indication: ACUTE LYMPHOCYTIC LEUKAEMIA
     Dosage: 24 MILLIGRAM, QD
     Route: 065
     Dates: start: 20190626
  46. METHOTREXATE. [Suspect]
     Active Substance: METHOTREXATE
     Indication: ACUTE LYMPHOCYTIC LEUKAEMIA
     Dosage: 12.5 MILLIGRAM
     Route: 065
     Dates: start: 20190617
  47. PREDNISOLONE. [Suspect]
     Active Substance: PREDNISOLONE
     Dosage: 40 MILLIGRAM
     Route: 065
     Dates: start: 20190809

REACTIONS (1)
  - Irritability [Recovered/Resolved]

NARRATIVE: CASE EVENT DATE: 20191024
